FAERS Safety Report 9099800 (Version 2)
Quarter: 2013Q1

REPORT INFORMATION
  Report Type: Report from Study
  Country: US (occurrence: US)
  Receive Date: 20130213
  Receipt Date: 20130320
  Transmission Date: 20140127
  Serious: No
  Sender: FDA-Public Use
  Company Number: US-VERTEX PHARMACEUTICALS INC.-2013-001958

PATIENT
  Age: 54 Year
  Sex: Male
  Weight: 64 kg

DRUGS (3)
  1. VX-950 (TELAPREVIR) [Suspect]
     Indication: HEPATITIS C
     Dosage: 750 MG, TID
     Route: 048
     Dates: start: 2013
  2. PEGASYS [Suspect]
     Indication: HEPATITIS C
     Dosage: 180 ?G, QW
     Route: 058
     Dates: start: 2013
  3. RIBAVIRIN [Suspect]
     Indication: HEPATITIS C
     Dosage: 1 DF, BID, 400/600MG TABS
     Route: 048
     Dates: start: 2013

REACTIONS (5)
  - Headache [Unknown]
  - Pain [Unknown]
  - Fatigue [Unknown]
  - Local swelling [Unknown]
  - Vomiting [Unknown]
